FAERS Safety Report 25403923 (Version 2)
Quarter: 2025Q3

REPORT INFORMATION
  Report Type: Report from Study
  Country: GB (occurrence: GB)
  Receive Date: 20250606
  Receipt Date: 20250909
  Transmission Date: 20251021
  Serious: Yes (Other)
  Sender: CELLTRION
  Company Number: GB-CELLTRION INC.-2025GB017191

PATIENT

DRUGS (2)
  1. ADALIMUMAB-AATY [Suspect]
     Active Substance: ADALIMUMAB-AATY
     Indication: Axial spondyloarthritis
     Dosage: 40 MG, EVERY TWO WEEKS
     Route: 058
     Dates: start: 202503
  2. ADALIMUMAB-AATY [Suspect]
     Active Substance: ADALIMUMAB-AATY
     Dosage: YUFLYMA 40MG FOR INJECTION PENS INJECT ONE PRE-FILLED PEN EVERY TWO WEEKS
     Route: 058
     Dates: start: 202503

REACTIONS (7)
  - Inflammatory bowel disease [Unknown]
  - Haematochezia [Unknown]
  - Incontinence [Unknown]
  - Spinal pain [Unknown]
  - Arthralgia [Unknown]
  - Product prescribing issue [Unknown]
  - Therapy interrupted [Unknown]
